FAERS Safety Report 4677581-6 (Version None)
Quarter: 2005Q2

REPORT INFORMATION
  Report Type: 
  Country: None (occurrence: None)
  Receive Date: 20050525
  Receipt Date: 20050525
  Transmission Date: 20051028
  Serious: Yes (Other)
  Sender: FDA-Public Use
  Company Number: None

PATIENT
  Age: 47 Year
  Sex: Female

DRUGS (5)
  1. OXYCODONE HCL [Suspect]
     Indication: ANALGESIC EFFECT
     Dosage: ONE P.O. Q 12 HOURS
     Route: 048
     Dates: start: 20050426, end: 20050519
  2. HYDROCODONE BITARTRATE + ACETAMINOPHEN [Concomitant]
  3. TRIAZOLAM [Concomitant]
  4. DIAZEPAM [Concomitant]
  5. EPIPEN [Concomitant]

REACTIONS (3)
  - DRUG INEFFECTIVE [None]
  - DRUG WITHDRAWAL SYNDROME [None]
  - PHARMACEUTICAL PRODUCT COMPLAINT [None]
